FAERS Safety Report 5150651-4 (Version None)
Quarter: 2006Q4

REPORT INFORMATION
  Report Type: 
  Country: None (occurrence: None)
  Receive Date: 20061114
  Receipt Date: 20061025
  Transmission Date: 20070319
  Serious: Yes (Life-Threatening)
  Sender: FDA-Public Use
  Company Number: 2006AP05171

PATIENT
  Age: 76 Year
  Sex: Male

DRUGS (8)
  1. ANAPEINE [Suspect]
     Indication: EPIDURAL ANAESTHESIA
     Route: 008
     Dates: start: 20060706, end: 20060710
  2. FENTANYL CITRATE [Suspect]
     Indication: GENERAL ANAESTHESIA
     Route: 042
     Dates: start: 20060706, end: 20060706
  3. FENTANYL CITRATE [Suspect]
     Indication: EPIDURAL ANAESTHESIA
     Route: 042
     Dates: start: 20060706, end: 20060706
  4. FENTANYL CITRATE [Suspect]
     Route: 008
     Dates: start: 20060706, end: 20060710
  5. FENTANYL CITRATE [Suspect]
     Route: 008
     Dates: start: 20060706, end: 20060710
  6. SEVOFLURANE [Concomitant]
     Indication: GENERAL ANAESTHESIA
     Route: 055
     Dates: start: 20060706, end: 20060706
  7. VECURONIUM BROMIDE [Concomitant]
     Indication: GENERAL ANAESTHESIA
     Route: 042
     Dates: start: 20060706, end: 20060706
  8. PROPOFOL [Concomitant]
     Indication: GENERAL ANAESTHESIA
     Route: 042
     Dates: start: 20060706, end: 20060706

REACTIONS (1)
  - RESPIRATORY FAILURE [None]
